FAERS Safety Report 4688988-5 (Version None)
Quarter: 2005Q2

REPORT INFORMATION
  Report Type: 
  Country: None (occurrence: None)
  Receive Date: 20050613
  Receipt Date: 20050606
  Transmission Date: 20051028
  Serious: Yes (Hospitalization)
  Sender: FDA-Public Use
  Company Number: PHRM2005FR01783

PATIENT
  Age: 63 Year
  Sex: Male

DRUGS (6)
  1. TAREG [Suspect]
     Indication: HYPERTENSIVE HEART DISEASE
     Dosage: 1 DF, QD
     Route: 048
  2. DEROXAT [Concomitant]
     Indication: DEPRESSION
     Dosage: 20 MG, QD
     Route: 048
  3. ALDACTONE [Suspect]
     Indication: HYPERTENSIVE HEART DISEASE
     Dosage: 75 MG, QD
     Route: 048
     Dates: start: 20050110, end: 20050331
  4. ISOPTIN [Concomitant]
     Indication: HYPERTENSIVE HEART DISEASE
     Dosage: 240 MG, QD
     Route: 048
  5. STILNOX [Concomitant]
     Indication: DEPRESSION
     Dosage: 10 MG, QD
     Route: 048
  6. LASIX [Concomitant]
     Indication: HYPERTENSIVE HEART DISEASE
     Dosage: 20 MG, BID
     Route: 048

REACTIONS (11)
  - BLOOD CHLORIDE DECREASED [None]
  - BLOOD CREATININE INCREASED [None]
  - BLOOD UREA INCREASED [None]
  - DRUG INTERACTION [None]
  - HYPERKALAEMIA [None]
  - HYPONATRAEMIA [None]
  - HYPOTENSION [None]
  - HYPOVENTILATION [None]
  - MALAISE [None]
  - RENAL FAILURE [None]
  - SOMNOLENCE [None]
